FAERS Safety Report 5675749-3 (Version None)
Quarter: 2008Q1

REPORT INFORMATION
  Report Type: 
  Country: None (occurrence: None)
  Receive Date: 20080321
  Receipt Date: 20080314
  Transmission Date: 20080703
  Serious: Yes (Other)
  Sender: FDA-Public Use
  Company Number: PHBS2008PT03365

PATIENT
  Age: 86 Year
  Sex: Female

DRUGS (1)
  1. FEMARA [Suspect]
     Dosage: 2.50 MG/DAY
     Route: 048

REACTIONS (4)
  - APNOEA [None]
  - PAIN IN EXTREMITY [None]
  - PARAESTHESIA [None]
  - TACHYCARDIA [None]
